FAERS Safety Report 10482875 (Version 1)
Quarter: 2014Q3

REPORT INFORMATION
  Report Type: Report from Study
  Country: US (occurrence: US)
  Receive Date: 20140929
  Receipt Date: 20140929
  Transmission Date: 20150326
  Serious: No
  Sender: FDA-Public Use
  Company Number: US-ALEXION-A201102435

PATIENT
  Sex: Male

DRUGS (1)
  1. SOLIRIS [Suspect]
     Active Substance: ECULIZUMAB
     Indication: PAROXYSMAL NOCTURNAL HAEMOGLOBINURIA
     Dosage: UNK
     Route: 042

REACTIONS (12)
  - Thrombocytopenia [Recovered/Resolved]
  - Blood lactate dehydrogenase decreased [Unknown]
  - Muscle spasms [Unknown]
  - Cough [Unknown]
  - Nasopharyngitis [Unknown]
  - Ear pain [Unknown]
  - Back pain [Unknown]
  - Haemoglobin abnormal [Unknown]
  - Transfusion [Unknown]
  - Arthralgia [Unknown]
  - Malaise [Unknown]
  - Fatigue [Unknown]
